FAERS Safety Report 10039376 (Version 2)
Quarter: 2015Q1

REPORT INFORMATION
  Report Type: Report from Study
  Country: DE (occurrence: DE)
  Receive Date: 20140326
  Receipt Date: 20150115
  Transmission Date: 20150720
  Serious: Yes (Disabling, Congenital Anomaly, Other)
  Sender: FDA-Public Use
  Company Number: PHHY2014DE035210

PATIENT
  Sex: Male
  Weight: 3 kg

DRUGS (10)
  1. GABAPENTIN. [Concomitant]
     Active Substance: GABAPENTIN
     Indication: MULTIPLE SCLEROSIS
     Dosage: MATERNAL DOSE: 1200 MG, TID
     Route: 064
     Dates: start: 20130607, end: 20131204
  2. SIMVABETA [Concomitant]
     Active Substance: SIMVASTATIN
     Indication: HYPERTENSION
     Dosage: MATERNAL DOSE: 40 MG, QD
     Route: 064
     Dates: start: 20130604, end: 20130604
  3. AMOXICILLIN. [Concomitant]
     Active Substance: AMOXICILLIN
     Indication: INFECTION
     Dosage: MATERNAL DOSE: 750 MG, TID
     Route: 064
     Dates: start: 20131017, end: 20131017
  4. CEFURAX [Concomitant]
     Active Substance: CEFUROXIME AXETIL
     Indication: INFECTION
     Dosage: MATERNAL DOSE: 500 MG, BID
     Route: 064
     Dates: start: 20131111, end: 20131111
  5. GILENYA [Suspect]
     Active Substance: FINGOLIMOD HYDROCHLORIDE
     Indication: MULTIPLE SCLEROSIS
     Dosage: MATERNAL DOSE: 0.5 MG, QD
     Route: 064
  6. BISOPROLOL [Concomitant]
     Active Substance: BISOPROLOL
     Indication: HYPERTENSION
     Dosage: UNK
     Route: 064
     Dates: start: 20130607, end: 20131204
  7. OMEPRAZOL//OMEPRAZOLE [Concomitant]
     Indication: GASTRITIS PROPHYLAXIS
     Dosage: MATERNAL DOSE: 20 MG, QD
     Route: 064
     Dates: start: 20130607, end: 20131204
  8. METHYLDOPA. [Concomitant]
     Active Substance: METHYLDOPA
     Indication: HYPERTENSION
     Dosage: MATERNAL DOSE: 250 MG, QD
     Route: 064
     Dates: start: 20130819, end: 20131204
  9. RAMILICH [Concomitant]
     Active Substance: RAMIPRIL
     Indication: HYPERTENSION
     Dosage: MATERNAL DOSE: 5 MG, QD
     Route: 064
  10. ACTRAPID//INSULIN HUMAN [Concomitant]
     Indication: TYPE 2 DIABETES MELLITUS
     Route: 064

REACTIONS (5)
  - Congenital hydronephrosis [Not Recovered/Not Resolved]
  - Renal hypoplasia [Not Recovered/Not Resolved]
  - Urinary tract infection neonatal [Unknown]
  - Foetal exposure during pregnancy [Unknown]
  - Phimosis [Recovered/Resolved]

NARRATIVE: CASE EVENT DATE: 20131204
